FAERS Safety Report 6352947-7 (Version None)
Quarter: 2009Q3

REPORT INFORMATION
  Report Type: 
  Country: None (occurrence: None)
  Receive Date: 20090912
  Receipt Date: 20090622
  Transmission Date: 20100115
  Serious: No
  Sender: FDA-Public Use
  Company Number: US-ABBOTT-08P-163-0449039-00

PATIENT
  Sex: Male
  Weight: 106.81 kg

DRUGS (12)
  1. HUMIRA [Suspect]
     Indication: CROHN'S DISEASE
     Route: 058
     Dates: start: 20070501
  2. HUMIRA [Suspect]
     Indication: RHEUMATOID ARTHRITIS
  3. METHOTREXATE [Concomitant]
     Indication: RHEUMATOID ARTHRITIS
     Route: 048
  4. FOLIC ACID [Concomitant]
     Indication: MEDICAL DIET
     Dosage: FOUR TO FIVE TABLETS A DAY
     Route: 048
  5. MESALAZINE [Concomitant]
     Indication: CROHN'S DISEASE
     Route: 048
     Dates: start: 20020101
  6. AZATHIOPRINE [Concomitant]
     Indication: CROHN'S DISEASE
     Route: 048
     Dates: start: 20060101
  7. ESOMEPRAZOLE MAGNESIUM [Concomitant]
     Indication: PROPHYLAXIS AGAINST GASTROINTESTINAL ULCER
     Route: 048
     Dates: start: 20030101
  8. METFORMIN HCL [Concomitant]
     Indication: DIABETES MELLITUS
     Route: 048
     Dates: start: 20030101
  9. TELMISARTAN [Concomitant]
     Indication: HYPERTENSION
     Route: 048
     Dates: start: 20030101
  10. PREDNISONE [Concomitant]
     Indication: CROHN'S DISEASE
     Dates: start: 19970101
  11. PREDNISONE [Concomitant]
     Indication: RHEUMATOID ARTHRITIS
  12. DULOXETINE HYDROCHLORIDE [Concomitant]
     Indication: NEUROPATHY PERIPHERAL
     Dates: start: 20080101

REACTIONS (2)
  - INCORRECT DOSE ADMINISTERED [None]
  - INJECTION SITE EXTRAVASATION [None]
